FAERS Safety Report 4892935-0 (Version None)
Quarter: 2006Q1

REPORT INFORMATION
  Report Type: 
  Country: None (occurrence: None)
  Receive Date: 20060126
  Receipt Date: 20060117
  Transmission Date: 20060701
  Serious: Yes (Hospitalization)
  Sender: FDA-Public Use
  Company Number: US-MERCK-0601USA02151

PATIENT
  Age: 65 Year
  Sex: Male
  Weight: 78 kg

DRUGS (14)
  1. VIOXX [Suspect]
     Indication: ARTHRITIS
     Route: 048
     Dates: start: 20010925, end: 20040818
  2. VIOXX [Suspect]
     Route: 048
     Dates: start: 20010925, end: 20040818
  3. HYDROCODONE BITARTRATE [Concomitant]
     Route: 065
  4. WARFARIN [Concomitant]
     Route: 065
  5. VIAGRA [Concomitant]
     Route: 065
  6. FLURBIPROFEN [Concomitant]
     Route: 065
  7. CIPRO [Concomitant]
     Route: 065
  8. PRILOSEC [Concomitant]
     Route: 065
  9. NEXIUM [Concomitant]
     Route: 065
  10. PROSCAR [Concomitant]
     Route: 065
  11. NITRO [Concomitant]
     Route: 065
  12. CARTIA (DILTIAZEM HYDROCHLORIDE) [Concomitant]
     Route: 065
  13. LESCOL [Concomitant]
     Route: 065
  14. FLOMAX [Concomitant]
     Route: 065

REACTIONS (9)
  - ARTHROPATHY [None]
  - CHEST PAIN [None]
  - CORONARY ARTERY DISEASE [None]
  - DYSPNOEA [None]
  - DYSPNOEA EXERTIONAL [None]
  - GASTROINTESTINAL DISORDER [None]
  - HYPERLIPIDAEMIA [None]
  - HYPERTENSION [None]
  - MYOCARDIAL INFARCTION [None]
